FAERS Safety Report 16230607 (Version 1)
Quarter: 2019Q2

REPORT INFORMATION
  Report Type: Spontaneous
  Country: US (occurrence: US)
  Receive Date: 20190423
  Receipt Date: 20190423
  Transmission Date: 20190711
  Serious: No
  Sender: FDA-Public Use
  Company Number: US-TEVA-2019-US-1041140

PATIENT
  Sex: Male

DRUGS (1)
  1. MUPIROCIN OINTMENT 2% TEVA [Suspect]
     Active Substance: MUPIROCIN

REACTIONS (1)
  - Dry skin [Unknown]
